FAERS Safety Report 20677304 (Version 2)
Quarter: 2022Q2

REPORT INFORMATION
  Report Type: Spontaneous
  Country: AU (occurrence: AU)
  Receive Date: 20220406
  Receipt Date: 20220515
  Transmission Date: 20220721
  Serious: Yes (Death, Life-Threatening)
  Sender: FDA-Public Use
  Company Number: AU-BEIGENE USA INC-BGN-2022-001646

PATIENT

DRUGS (1)
  1. BRUKINSA [Suspect]
     Active Substance: ZANUBRUTINIB
     Indication: Mantle cell lymphoma
     Dosage: UNK
     Route: 048
     Dates: start: 20220128, end: 20220305

REACTIONS (3)
  - Malignant neoplasm progression [Fatal]
  - White blood cell count increased [Not Recovered/Not Resolved]
  - Fatigue [Not Recovered/Not Resolved]

NARRATIVE: CASE EVENT DATE: 20220201
